FAERS Safety Report 18244290 (Version 1)
Quarter: 2020Q3

REPORT INFORMATION
  Report Type: Spontaneous
  Country: US (occurrence: US)
  Receive Date: 20200908
  Receipt Date: 20200908
  Transmission Date: 20201103
  Serious: Yes (Other)
  Sender: FDA-Public Use
  Company Number: US-JNJFOC-20200844941

PATIENT
  Sex: Female

DRUGS (1)
  1. ELMIRON [Suspect]
     Active Substance: PENTOSAN POLYSULFATE SODIUM
     Indication: CYSTITIS INTERSTITIAL
     Route: 048
     Dates: start: 2007, end: 202008

REACTIONS (4)
  - Vision blurred [Unknown]
  - Photophobia [Unknown]
  - Visual field defect [Unknown]
  - Night blindness [Unknown]

NARRATIVE: CASE EVENT DATE: 2018
